FAERS Safety Report 20322084 (Version 3)
Quarter: 2022Q1

REPORT INFORMATION
  Report Type: Spontaneous
  Country: US (occurrence: US)
  Receive Date: 20220111
  Receipt Date: 20220328
  Transmission Date: 20220423
  Serious: Yes (Other)
  Sender: FDA-Public Use
  Company Number: US-PFIZER INC-202200009816

PATIENT
  Age: 68 Year
  Sex: Female

DRUGS (1)
  1. XELJANZ [Suspect]
     Active Substance: TOFACITINIB CITRATE
     Dosage: 5 MG

REACTIONS (6)
  - Autoimmune disorder [Unknown]
  - Drug intolerance [Unknown]
  - Neuralgia [Unknown]
  - Oral pain [Unknown]
  - Oesophageal disorder [Unknown]
  - Dysphagia [Unknown]
